FAERS Safety Report 4480375-8 (Version None)
Quarter: 2004Q4

REPORT INFORMATION
  Report Type: 
  Country: None (occurrence: None)
  Receive Date: 20041018
  Receipt Date: 20041014
  Transmission Date: 20050328
  Serious: Yes (Hospitalization, Other)
  Sender: FDA-Public Use
  Company Number: DEWYE110014OCT04

PATIENT
  Age: 46 Year
  Sex: Female

DRUGS (3)
  1. TACROLIMUS, CONTROL FOR SIROLIMUS (TACROLIMUS, CONTROL FOR SIROLIMUS, [Suspect]
     Indication: RENAL TRANSPLANT
     Dates: start: 20040708, end: 20040716
  2. MYCOPHENOLATE MOFETIL (MYCOPHENOLATE MOFETIL) [Concomitant]
  3. CORTICOSTEROIDS (CORTICOSTEROIDS) [Concomitant]

REACTIONS (2)
  - KIDNEY TRANSPLANT REJECTION [None]
  - THERAPEUTIC AGENT TOXICITY [None]
